FAERS Safety Report 4898129-7 (Version None)
Quarter: 2006Q1

REPORT INFORMATION
  Report Type: 
  Country: None (occurrence: None)
  Receive Date: 20060201
  Receipt Date: 20060125
  Transmission Date: 20060701
  Serious: Yes (Hospitalization)
  Sender: FDA-Public Use
  Company Number: US-BRISTOL-MYERS SQUIBB COMPANY-13260245

PATIENT
  Age: 71 Year
  Sex: Male

DRUGS (15)
  1. CETUXIMAB [Suspect]
     Indication: COLORECTAL CANCER
     Route: 042
     Dates: start: 20050916, end: 20050916
  2. IRINOTECAN HCL [Suspect]
     Indication: COLORECTAL CANCER
     Route: 042
     Dates: start: 20050916, end: 20050916
  3. FLAGYL [Concomitant]
     Dates: start: 20051006, end: 20051008
  4. ASPIRIN [Concomitant]
  5. PLAVIX [Concomitant]
  6. VYTORIN [Concomitant]
  7. COUMADIN [Concomitant]
  8. ATENOLOL [Concomitant]
  9. LANOXIN [Concomitant]
  10. GLUCOPHAGE [Concomitant]
  11. NEURONTIN [Concomitant]
  12. ACIPHEX [Concomitant]
  13. HYTRIN [Concomitant]
  14. SYNTHROID [Concomitant]
  15. AVANDIA [Concomitant]

REACTIONS (4)
  - ARRHYTHMIA [None]
  - ASTHENIA [None]
  - HYPONATRAEMIA [None]
  - HYPOVOLAEMIA [None]
